FAERS Safety Report 19276308 (Version 13)
Quarter: 2021Q3

REPORT INFORMATION
  Report Type: Report from Study
  Country: IT (occurrence: IT)
  Receive Date: 20210520
  Receipt Date: 20210914
  Transmission Date: 20211014
  Serious: Yes (Other)
  Sender: FDA-Public Use
  Company Number: IT-CELLTRION INC.-2021IT006701

PATIENT

DRUGS (41)
  1. EXEMESTANE. [Suspect]
     Active Substance: EXEMESTANE
     Indication: HER2 POSITIVE BREAST CANCER
     Dosage: 25 MG, QD; DATE OF MOST RECENT DOSE OF EXEMESTANE RECEIVED PRIOR TO THE EVENT ONSET: 22/APR/2020
     Route: 048
     Dates: start: 20190819, end: 20200422
  2. IVABRADINE [Concomitant]
     Active Substance: IVABRADINE
     Dosage: UNK
     Dates: start: 20151118
  3. TRASTUZUMAB. [Suspect]
     Active Substance: TRASTUZUMAB
     Indication: HER2 POSITIVE BREAST CANCER
     Route: 065
  4. TRASTUZUMAB EMTANSINE [Suspect]
     Active Substance: ADO-TRASTUZUMAB EMTANSINE
     Dosage: 3.6 MICROGRAM/KILOGRAM, Q3WK (UNIT=NOT AVAILABLE)
     Route: 065
     Dates: start: 20200506, end: 20201104
  5. EXEMESTANE. [Suspect]
     Active Substance: EXEMESTANE
     Dosage: 25 MG, QD
     Route: 065
     Dates: start: 20190819, end: 20200422
  6. IVABRADINE [Suspect]
     Active Substance: IVABRADINE
     Indication: PRODUCT USED FOR UNKNOWN INDICATION
     Dosage: 130 MILLIGRAM (UNIT=NOT AVAILABLE)
     Route: 042
     Dates: start: 20190314, end: 20190610
  7. IVABRADINE [Suspect]
     Active Substance: IVABRADINE
     Dosage: UNK MILLIGRAM/SQ. METER (UNIT=NOT AVAILABLE)
     Route: 042
     Dates: start: 20201215
  8. VINORELBINE TARTRATE. [Suspect]
     Active Substance: VINORELBINE TARTRATE
     Indication: HER2 POSITIVE BREAST CANCER
     Dosage: UNK MILLIGRAM/SQ. METER
     Route: 065
     Dates: start: 20201215
  9. IVABRADINE NOS [Suspect]
     Active Substance: IVABRADINE
     Dosage: 25 MG, QD
     Route: 042
     Dates: start: 20201215, end: 20210107
  10. IVABRADINE NOS [Suspect]
     Active Substance: IVABRADINE
     Dosage: 3.6 MICROGRAM/KILOGRAM, Q3WK
     Route: 042
     Dates: start: 20200506, end: 20201104
  11. VINORELBINE [Concomitant]
     Active Substance: VINORELBINE TARTRATE
     Indication: HER2 POSITIVE BREAST CANCER
     Dosage: 25 MG/M2
     Route: 042
     Dates: start: 20201215
  12. PERTUZUMAB. [Suspect]
     Active Substance: PERTUZUMAB
     Indication: HER2 POSITIVE BREAST CANCER
     Dosage: 840 MG, EVERY 3 WEEKS; DATE OF MOST RECENT DOSE RECEIVED PRIOR TO THE EVENT ONSET: 08/APR/2019
     Route: 042
     Dates: start: 20190314, end: 20190314
  13. TRASTUZUMAB EMTANSINE [Suspect]
     Active Substance: ADO-TRASTUZUMAB EMTANSINE
     Indication: HER2 POSITIVE BREAST CANCER
     Dosage: 3.6 UG/KG, EVERY 3 WEEKS; DATE OF MOST RECENT DOSE RECEIVED PRIOR TO THE EVENT ONSET: 04/NOV/2020
     Route: 042
     Dates: start: 20200506, end: 20201104
  14. IVABRADINE [Suspect]
     Active Substance: IVABRADINE
     Dosage: 840 MILLIGRAM, Q3WK (UNIT=NOT AVAILABLE)
     Route: 042
     Dates: start: 20190314, end: 20190314
  15. URSODEOXYCHOLIC ACID [Concomitant]
     Active Substance: URSODIOL
     Indication: PRODUCT USED FOR UNKNOWN INDICATION
     Dosage: UNK
     Dates: start: 20200709
  16. QUETIAPINE FUMARATE. [Concomitant]
     Active Substance: QUETIAPINE FUMARATE
     Indication: PRODUCT USED FOR UNKNOWN INDICATION
     Dosage: UNK
  17. PERTUZUMAB. [Suspect]
     Active Substance: PERTUZUMAB
     Indication: HER2 POSITIVE BREAST CANCER
     Dosage: 840 MILLIGRAM, Q3WK (UNIT=NOT AVAILABLE)
     Route: 042
     Dates: start: 20190314, end: 20190314
  18. IVABRADINE [Suspect]
     Active Substance: IVABRADINE
     Dosage: UNK (UNIT=NOT AVAILABLE)
     Route: 065
     Dates: start: 20151118
  19. IVABRADINE [Suspect]
     Active Substance: IVABRADINE
     Dosage: 25 MILLIGRAM, QD (UNIT=NOT AVAILABLE)
     Route: 048
     Dates: start: 20190819, end: 20200422
  20. TRASTUZUMAB EMTANSINE [Suspect]
     Active Substance: ADO-TRASTUZUMAB EMTANSINE
     Dosage: 3.6 MICROGRAM/KILOGRAM, Q3WK
     Dates: start: 20201104
  21. IVABRADINE [Suspect]
     Active Substance: IVABRADINE
     Dosage: UNK UNIT=NOT AVAILABLE
     Route: 042
     Dates: start: 20151118
  22. IVABRADINE [Suspect]
     Active Substance: IVABRADINE
     Dosage: 3.6 MICROGRAM/KILOGRAM, Q3WK (UNIT=NOT AVAILABLE)
     Route: 048
     Dates: start: 20200506, end: 20201104
  23. IVABRADINE [Suspect]
     Active Substance: IVABRADINE
     Dosage: 3.6 MICROGRAM/KILOGRAM, Q3WK (UNIT=NOT AVAILABLE)
     Route: 042
     Dates: start: 20200506, end: 20201104
  24. BISOPROLOL [Concomitant]
     Active Substance: BISOPROLOL
     Indication: PRODUCT USED FOR UNKNOWN INDICATION
     Dosage: UNK
     Route: 065
     Dates: start: 20151118
  25. PACLITAXEL. [Suspect]
     Active Substance: PACLITAXEL
     Indication: HER2 POSITIVE BREAST CANCER
     Dosage: 130 MG (UNIT=NOT AVAILABLE)
     Route: 065
     Dates: start: 20190314, end: 20190610
  26. TRASTUZUMAB EMTANSINE [Suspect]
     Active Substance: ADO-TRASTUZUMAB EMTANSINE
     Indication: HER2 POSITIVE BREAST CANCER
     Dosage: 3.6 MICROGRAM/KILOGRAM, Q3WK (UNIT=NOT AVAILABLE)
     Route: 042
     Dates: start: 20200506, end: 20201104
  27. EXEMESTANE. [Suspect]
     Active Substance: EXEMESTANE
     Dosage: 25 MG QD
     Dates: start: 20200422
  28. EXEMESTANE. [Suspect]
     Active Substance: EXEMESTANE
     Indication: HER2 POSITIVE BREAST CANCER
     Dosage: 25 MILLIGRAM, QD
     Route: 065
     Dates: start: 20190819, end: 20200422
  29. IVABRADINE [Suspect]
     Active Substance: IVABRADINE
     Dosage: 25 MILLIGRAM, QD UNIT=AVAILABLE
     Route: 042
     Dates: start: 20201215, end: 20210107
  30. VINORELBINE TARTRATE. [Suspect]
     Active Substance: VINORELBINE TARTRATE
     Indication: HER2 POSITIVE BREAST CANCER
     Dosage: UNK MILLIGRAM/SQ. METER (UNIT=NOT AVAILABLE)
     Route: 065
     Dates: start: 20201215
  31. IVABRADINE NOS [Suspect]
     Active Substance: IVABRADINE
     Dosage: UNK
     Route: 042
     Dates: start: 20151118
  32. DIBASE [Concomitant]
     Active Substance: CHOLECALCIFEROL
     Indication: PRODUCT USED FOR UNKNOWN INDICATION
     Dosage: UNK
     Route: 065
  33. QUETIAPINE. [Concomitant]
     Active Substance: QUETIAPINE
     Indication: PRODUCT USED FOR UNKNOWN INDICATION
  34. PACLITAXEL. [Suspect]
     Active Substance: PACLITAXEL
     Indication: HER2 POSITIVE BREAST CANCER
     Dosage: 130 MG, DATE OF MOST RECENT DOSE RECEIVED PRIOR TO THE EVENT ONSET: 17/JUN/2019
     Route: 042
     Dates: start: 20190314, end: 20190610
  35. PERTUZUMAB. [Suspect]
     Active Substance: PERTUZUMAB
     Dosage: 840 MILLIGRAM, Q3WK
     Route: 042
     Dates: start: 20190408
  36. IVABRADINE NOS [Suspect]
     Active Substance: IVABRADINE
     Indication: PRODUCT USED FOR UNKNOWN INDICATION
     Dosage: 840 MILLIGRAM, Q3WK
     Route: 042
     Dates: start: 20190314, end: 20190314
  37. IVABRADINE NOS [Suspect]
     Active Substance: IVABRADINE
     Dosage: 25 MILLIGRAM, QD
     Route: 048
     Dates: start: 20190819, end: 20200422
  38. TRASTUZUMAB. [Suspect]
     Active Substance: TRASTUZUMAB
     Indication: HER2 POSITIVE BREAST CANCER
     Dosage: 2 UG/KG; DATE OF MOST RECENT DOSE RECEIVED PRIOR TO THE EVENT ONSET: 15/DEC/2020
     Route: 042
     Dates: start: 20201215, end: 20210107
  39. TRASTUZUMAB EMTANSINE [Suspect]
     Active Substance: ADO-TRASTUZUMAB EMTANSINE
     Dosage: 3.6 MICROGRAM/KILOGRAM
     Dates: end: 20201215
  40. IVABRADINE NOS [Suspect]
     Active Substance: IVABRADINE
     Dosage: 130 MILLIGRAM
     Route: 042
     Dates: start: 20190314, end: 20190610
  41. BISOPROLOL [Concomitant]
     Active Substance: BISOPROLOL
     Dosage: UNK
     Dates: start: 20200709

REACTIONS (3)
  - Underdose [Unknown]
  - Off label use [Unknown]
  - Neutropenia [Recovering/Resolving]

NARRATIVE: CASE EVENT DATE: 20190314
